FAERS Safety Report 7598018-3 (Version None)
Quarter: 2011Q3

REPORT INFORMATION
  Report Type: 
  Country: None (occurrence: None)
  Receive Date: 20110708
  Receipt Date: 20110627
  Transmission Date: 20111222
  Serious: Yes (Other)
  Sender: FDA-Public Use
  Company Number: CA-JNJFOC-20110700822

PATIENT
  Sex: Female
  Weight: 162.39 kg

DRUGS (14)
  1. PREDNISOLONE [Concomitant]
     Indication: GLAUCOMA
  2. ALBUTEROL [Concomitant]
  3. CRESTOR [Concomitant]
     Indication: BLOOD CHOLESTEROL INCREASED
  4. EPIPEN [Concomitant]
     Indication: MULTIPLE ALLERGIES
  5. NITROGLYCERIN [Concomitant]
  6. REMICADE [Suspect]
     Indication: SARCOIDOSIS
     Route: 042
     Dates: start: 20110601
  7. REMICADE [Suspect]
     Route: 042
     Dates: start: 20110518
  8. AMERGE [Concomitant]
     Indication: MIGRAINE
  9. SYNTHROID [Concomitant]
     Indication: HYPOTHYROIDISM
  10. NEXIUM [Concomitant]
     Indication: GASTROOESOPHAGEAL REFLUX DISEASE
  11. CLONAZEPAM [Concomitant]
     Indication: ANXIETY
  12. ZOPICLONE [Concomitant]
     Indication: SLEEP DISORDER
  13. HYDROCHLOROTHIAZIDE [Concomitant]
     Indication: HYPERTENSION
  14. BRIMONIDINE [Concomitant]
     Indication: GLAUCOMA

REACTIONS (4)
  - HYPERSOMNIA [None]
  - DYSURIA [None]
  - MICTURITION URGENCY [None]
  - ABDOMINAL PAIN LOWER [None]
